FAERS Safety Report 7909457-2 (Version None)
Quarter: 2011Q4

REPORT INFORMATION
  Report Type: 
  Country: None (occurrence: None)
  Receive Date: 20111111
  Receipt Date: 20111109
  Transmission Date: 20120403
  Serious: Yes (Hospitalization)
  Sender: FDA-Public Use
  Company Number: US-GLAXOSMITHKLINE-A0952422A

PATIENT
  Age: 59 Year
  Sex: Female

DRUGS (1)
  1. ALLI [Suspect]
     Indication: WEIGHT LOSS DIET
     Route: 048
     Dates: end: 20100701

REACTIONS (9)
  - BACTERIAL INFECTION [None]
  - MALAISE [None]
  - LIVER DISORDER [None]
  - LIVER ABSCESS [None]
  - ADVERSE EVENT [None]
  - RESPIRATORY TRACT IRRITATION [None]
  - PAIN [None]
  - LUNG DISORDER [None]
  - LENTIGO [None]
